FAERS Safety Report 4417225-1 (Version None)
Quarter: 2004Q3

REPORT INFORMATION
  Report Type: 
  Country: None (occurrence: None)
  Receive Date: 20040806
  Receipt Date: 20040802
  Transmission Date: 20050211
  Serious: Yes (Hospitalization)
  Sender: FDA-Public Use
  Company Number: FR-ROCHE-376401

PATIENT
  Sex: Female
  Weight: 3 kg

DRUGS (3)
  1. RIVOTRIL [Suspect]
     Indication: DRUG USE FOR UNKNOWN INDICATION
     Dates: end: 20030912
  2. DAFALGAN CODEINE [Suspect]
     Indication: DRUG USE FOR UNKNOWN INDICATION
     Dates: end: 20030912
  3. DEROXAT [Concomitant]
     Dates: end: 20030912

REACTIONS (4)
  - INFECTION [None]
  - MATERNAL DRUGS AFFECTING FOETUS [None]
  - PREGNANCY [None]
  - RESPIRATORY DISTRESS [None]
